FAERS Safety Report 16473705 (Version 1)
Quarter: 2019Q2

REPORT INFORMATION
  Report Type: Spontaneous
  Country: US (occurrence: US)
  Receive Date: 20190625
  Receipt Date: 20190625
  Transmission Date: 20190711
  Serious: Yes (Hospitalization)
  Sender: FDA-Public Use
  Company Number: US-MYLANLABS-2019M1058271

PATIENT
  Age: 38 Year
  Sex: Female

DRUGS (2)
  1. ASPIRIN                            /00002701/ [Concomitant]
     Active Substance: ASPIRIN
     Indication: PAIN IN EXTREMITY
     Route: 048
  2. BUPRENORPHINE. [Suspect]
     Active Substance: BUPRENORPHINE
     Indication: PAIN IN EXTREMITY
     Dosage: TWO TABLETS OF 200 MICROGRAM
     Route: 060

REACTIONS (5)
  - Miosis [Recovered/Resolved]
  - Nausea [Recovered/Resolved]
  - Incorrect dose administered [Recovered/Resolved]
  - Somnolence [Recovered/Resolved]
  - Accidental overdose [Recovered/Resolved]
